FAERS Safety Report 4996431-1 (Version None)
Quarter: 2006Q2

REPORT INFORMATION
  Report Type: 
  Country: None (occurrence: None)
  Receive Date: 20060505
  Receipt Date: 20060425
  Transmission Date: 20061013
  Serious: Yes (Other)
  Sender: FDA-Public Use
  Company Number: 2005088873

PATIENT
  Age: 34 Year
  Sex: Female
  Weight: 90 kg

DRUGS (6)
  1. LYRICA [Suspect]
     Indication: NEURALGIA
     Dosage: (75 MG), ORAL
     Route: 048
     Dates: start: 20050301, end: 20050520
  2. PROZAC [Concomitant]
  3. CARBAMAZEPINE [Concomitant]
  4. GABAPENTIN [Concomitant]
  5. CO-DYDRAMOL (DIHYDROCODEINE BITARTRATE, PARACETAMOL) [Concomitant]
  6. DIHYDROCODEINE (DIHYDROCODEINE) [Concomitant]

REACTIONS (3)
  - CONDITION AGGRAVATED [None]
  - DEPRESSION [None]
  - OVERDOSE [None]
